FAERS Safety Report 5753559-6 (Version None)
Quarter: 2008Q2

REPORT INFORMATION
  Report Type: 
  Country: None (occurrence: None)
  Receive Date: 20080530
  Receipt Date: 20080527
  Transmission Date: 20081010
  Serious: Yes (Death)
  Sender: FDA-Public Use
  Company Number: IT-WYE-H03678208

PATIENT
  Sex: Female

DRUGS (6)
  1. GEMTUZUMAB OZOGAMICIN [Suspect]
     Indication: ACUTE MYELOID LEUKAEMIA
     Dates: start: 20080411, end: 20080411
  2. BB-K8 [Concomitant]
     Dosage: 1 DL (EV)
  3. TARGOCID [Concomitant]
     Dosage: 40 MG X2 (EV)
  4. GLAZIDIM [Concomitant]
  5. LANSOX [Concomitant]
     Route: 048
  6. DIFLUCAN [Concomitant]
     Dosage: 50 MG (EV)

REACTIONS (1)
  - SUBDURAL HAEMORRHAGE [None]
